FAERS Safety Report 13301744 (Version 1)
Quarter: 2017Q1

REPORT INFORMATION
  Report Type: Spontaneous
  Country: CN (occurrence: CN)
  Receive Date: 20170307
  Receipt Date: 20170307
  Transmission Date: 20170428
  Serious: Yes (Other)
  Sender: FDA-Public Use
  Company Number: PHHY2017CN033475

PATIENT
  Age: 28 Year
  Sex: Female

DRUGS (10)
  1. PACLITAXEL. [Concomitant]
     Active Substance: PACLITAXEL
     Indication: METASTASES TO CENTRAL NERVOUS SYSTEM
  2. PACLITAXEL. [Concomitant]
     Active Substance: PACLITAXEL
     Indication: METASTASES TO BONE
  3. ZOLEDRONATE [Suspect]
     Active Substance: ZOLEDRONIC ACID
     Indication: METASTASES TO BONE
  4. PIRARUBICIN [Concomitant]
     Active Substance: PIRARUBICIN
     Indication: BREAST CANCER METASTATIC
     Dosage: 70 MG PLUS 4 MG (TWO CYCLES), UNK
     Route: 065
  5. CISPLATIN. [Concomitant]
     Active Substance: CISPLATIN
     Indication: PRODUCT USED FOR UNKNOWN INDICATION
     Dosage: 90 MG, UNK
     Route: 065
  6. PIRARUBICIN [Concomitant]
     Active Substance: PIRARUBICIN
     Indication: METASTASES TO CENTRAL NERVOUS SYSTEM
     Dosage: 70 MG FOR FOUR CYCLES)
     Route: 065
  7. ZOLEDRONATE [Suspect]
     Active Substance: ZOLEDRONIC ACID
     Indication: METASTASES TO CENTRAL NERVOUS SYSTEM
  8. PIRARUBICIN [Concomitant]
     Active Substance: PIRARUBICIN
     Indication: METASTASES TO BONE
  9. ZOLEDRONATE [Suspect]
     Active Substance: ZOLEDRONIC ACID
     Indication: BREAST CANCER METASTATIC
     Dosage: 4 MG, QMO
     Route: 065
  10. PACLITAXEL. [Concomitant]
     Active Substance: PACLITAXEL
     Indication: BREAST CANCER METASTATIC
     Dosage: 240 MG, UNK
     Route: 065

REACTIONS (6)
  - Osteonecrosis of jaw [Unknown]
  - Pain in jaw [Unknown]
  - Squamous cell carcinoma of the oral cavity [Unknown]
  - Second primary malignancy [Unknown]
  - Swelling face [Unknown]
  - Joint stiffness [Unknown]
